FAERS Safety Report 5007979-8 (Version None)
Quarter: 2006Q2

REPORT INFORMATION
  Report Type: 
  Country: None (occurrence: None)
  Receive Date: 20060518
  Receipt Date: 20060505
  Transmission Date: 20061013
  Serious: Yes (Life-Threatening, Hospitalization)
  Sender: FDA-Public Use
  Company Number: 8015667

PATIENT
  Sex: Male

DRUGS (2)
  1. KEPPRA [Suspect]
  2. LAMOTRIGINE [Suspect]
     Indication: EPILEPSY
     Dosage: PO
     Route: 048

REACTIONS (2)
  - STAPHYLOCOCCAL BACTERAEMIA [None]
  - WOUND INFECTION [None]
